FAERS Safety Report 6162698-X (Version None)
Quarter: 2009Q2

REPORT INFORMATION
  Report Type: 
  Country: None (occurrence: None)
  Receive Date: 20090421
  Receipt Date: 20081014
  Transmission Date: 20091009
  Serious: No
  Sender: FDA-Public Use
  Company Number: US-ASTRAZENECA-1998AU05033

PATIENT
  Age: 65 Year
  Sex: Female
  Weight: 52.2 kg

DRUGS (8)
  1. TOPROL-XL [Suspect]
     Indication: HYPERTENSION
     Dosage: DOSE: 50 MG TOTAL DAILY DOSE: 50 MG
     Route: 048
     Dates: start: 19980515
  2. ACCUPRIL [Concomitant]
     Indication: HYPERTENSION
     Route: 065
  3. LIPITOR [Concomitant]
     Indication: BLOOD CHOLESTEROL INCREASED
     Route: 065
  4. TRIAVIL [Concomitant]
     Route: 065
  5. ASCORBIC ACID [Concomitant]
  6. ASPIRIN [Concomitant]
  7. VITAMIN D [Concomitant]
  8. IRON [Concomitant]

REACTIONS (2)
  - ALOPECIA [None]
  - WEIGHT INCREASED [None]
